FAERS Safety Report 17346317 (Version 1)
Quarter: 2020Q1

REPORT INFORMATION
  Report Type: Report from Study
  Country: US (occurrence: US)
  Receive Date: 20200129
  Receipt Date: 20200129
  Transmission Date: 20200409
  Serious: No
  Sender: FDA-Public Use
  Company Number: US-EXELIXIS-CABO-19022634

PATIENT
  Sex: Male

DRUGS (14)
  1. CABOMETYX [Suspect]
     Active Substance: CABOZANTINIB S-MALATE
     Indication: RENAL CANCER
     Dosage: 60 MG, QD
     Route: 048
     Dates: start: 20190221
  2. CABOMETYX [Suspect]
     Active Substance: CABOZANTINIB S-MALATE
     Indication: METASTASES TO BONE
     Dosage: 40 MG, QD
     Route: 048
  3. OMEPRAZOLE. [Concomitant]
     Active Substance: OMEPRAZOLE
  4. CLONIDINE. [Concomitant]
     Active Substance: CLONIDINE
  5. PROMETHAZINE [Concomitant]
     Active Substance: PROMETHAZINE HYDROCHLORIDE
  6. DIAZEPAM. [Concomitant]
     Active Substance: DIAZEPAM
  7. ASPIRIN. [Concomitant]
     Active Substance: ASPIRIN
  8. NORCO [Concomitant]
     Active Substance: ACETAMINOPHEN\HYDROCODONE BITARTRATE
  9. SENSIPAR [Concomitant]
     Active Substance: CINACALCET HYDROCHLORIDE
  10. DIALYVITE [Concomitant]
     Active Substance: ASCORBIC ACID\BIOTIN\CALCIUM PANTOTHENATE\COBALAMIN\FOLIC ACID\NIACINAMIDE\PYRIDOXINE HYDROCHLORIDE\RIBOFLAVIN\THIAMINE MONONITRATE
  11. NITROGLYCERIN. [Concomitant]
     Active Substance: NITROGLYCERIN
  12. ZOLPIDEM [Concomitant]
     Active Substance: ZOLPIDEM TARTRATE
  13. OSCAL [Concomitant]
     Active Substance: CALCIUM CARBONATE
  14. RENVELA [Concomitant]
     Active Substance: SEVELAMER CARBONATE

REACTIONS (6)
  - Constipation [Unknown]
  - Thinking abnormal [Unknown]
  - Hypophagia [Unknown]
  - Gait disturbance [Unknown]
  - Weight decreased [Unknown]
  - Swelling [Unknown]
